FAERS Safety Report 21983223 (Version 12)
Quarter: 2024Q3

REPORT INFORMATION
  Report Type: Report from Study
  Country: US (occurrence: US)
  Receive Date: 20230213
  Receipt Date: 20240704
  Transmission Date: 20241017
  Serious: Yes (Other)
  Sender: TAKEDA
  Company Number: US-TAKEDA-2022TUS040764

PATIENT
  Age: 42 Year
  Sex: Male

DRUGS (3)
  1. PONATINIB [Suspect]
     Active Substance: PONATINIB
     Indication: Acute lymphocytic leukaemia
     Dosage: 30 MILLIGRAM, QD
     Route: 048
  2. PONATINIB [Suspect]
     Active Substance: PONATINIB
     Indication: Philadelphia positive acute lymphocytic leukaemia
     Dosage: 30 MILLIGRAM, QD
     Route: 048
  3. PONATINIB [Suspect]
     Active Substance: PONATINIB
     Dosage: 30 MILLIGRAM, QD
     Route: 048
     Dates: start: 20230301

REACTIONS (21)
  - Haematochezia [Unknown]
  - Urticaria [Unknown]
  - Dizziness [Unknown]
  - Alopecia [Unknown]
  - Ocular hyperaemia [Not Recovered/Not Resolved]
  - Hypoaesthesia [Unknown]
  - Vision blurred [Unknown]
  - Dyspnoea [Unknown]
  - Asthenia [Unknown]
  - Rash [Unknown]
  - Malaise [Unknown]
  - Arthralgia [Unknown]
  - Haemorrhoids [Unknown]
  - Furuncle [Not Recovered/Not Resolved]
  - Spinal pain [Not Recovered/Not Resolved]
  - Eye pruritus [Unknown]
  - Rhinorrhoea [Unknown]
  - Dry throat [Unknown]
  - Headache [Unknown]
  - Drug effect less than expected [Unknown]
  - Product dose omission issue [Unknown]

NARRATIVE: CASE EVENT DATE: 20231001
